FAERS Safety Report 15341782 (Version 2)
Quarter: 2019Q1

REPORT INFORMATION
  Report Type: Report from Study
  Country: US (occurrence: US)
  Receive Date: 20180901
  Receipt Date: 20190308
  Transmission Date: 20190417
  Serious: No
  Sender: FDA-Public Use
  Company Number: PHEH2018US036116

PATIENT
  Sex: Male

DRUGS (1)
  1. ENTRESTO [Suspect]
     Active Substance: SACUBITRIL\VALSARTAN
     Indication: PRODUCT USED FOR UNKNOWN INDICATION
     Dosage: UNK
     Route: 048
     Dates: start: 20180710

REACTIONS (6)
  - Fluid retention [Unknown]
  - Dizziness [Recovered/Resolved]
  - Weight fluctuation [Unknown]
  - Varicose vein [Unknown]
  - Somnolence [Unknown]
  - Blood pressure decreased [Unknown]
